APPROVED DRUG PRODUCT: HYDROXYZINE PAMOATE
Active Ingredient: HYDROXYZINE PAMOATE
Strength: EQ 25MG HYDROCHLORIDE
Dosage Form/Route: CAPSULE;ORAL
Application: A088392 | Product #001
Applicant: VANGARD LABORATORIES INC DIV MIDWAY MEDICAL CO
Approved: Sep 19, 1983 | RLD: No | RS: No | Type: DISCN